FAERS Safety Report 7055081-6 (Version None)
Quarter: 2010Q4

REPORT INFORMATION
  Report Type: 
  Country: None (occurrence: None)
  Receive Date: 20101021
  Receipt Date: 20101014
  Transmission Date: 20110411
  Serious: Yes (Death)
  Sender: FDA-Public Use
  Company Number: US-BAXTER-2010BH022242

PATIENT
  Age: 71 Year
  Sex: Male

DRUGS (9)
  1. GAMMAGARD LIQUID [Suspect]
     Indication: HYPOGAMMAGLOBULINAEMIA
     Route: 042
     Dates: start: 20100517, end: 20100517
  2. GAMMAGARD LIQUID [Suspect]
     Route: 042
     Dates: start: 20100517, end: 20100517
  3. GAMMAGARD LIQUID [Suspect]
     Route: 042
     Dates: start: 20071114
  4. DIPHENHYDRAMINE HCL [Concomitant]
     Route: 048
  5. IBUPROFEN [Concomitant]
     Route: 048
  6. PANTOPRAZOLE [Concomitant]
     Route: 048
  7. CYTOXAN [Concomitant]
  8. LIPITOR [Concomitant]
     Route: 048
  9. AGGRENOX [Concomitant]
     Route: 048

REACTIONS (1)
  - DEATH [None]
